FAERS Safety Report 15567927 (Version 3)
Quarter: 2018Q4

REPORT INFORMATION
  Report Type: Spontaneous
  Country: JP (occurrence: JP)
  Receive Date: 20181030
  Receipt Date: 20181204
  Transmission Date: 20190205
  Serious: Yes (Death)
  Sender: FDA-Public Use
  Company Number: JP-ACTELION-A-NJ2018-181090

PATIENT
  Age: 32 Year
  Sex: Female

DRUGS (15)
  1. RABEPRAZOLE [Concomitant]
     Active Substance: RABEPRAZOLE
     Dosage: UNK
     Dates: end: 20180322
  2. ADENOSINE TRIPHOSPHATE, DISODIUM SA [Concomitant]
  3. OXYGEN. [Concomitant]
     Active Substance: OXYGEN
     Dosage: UNK
     Dates: end: 20180322
  4. BOSENTAN. [Suspect]
     Active Substance: BOSENTAN
     Indication: PORTOPULMONARY HYPERTENSION
     Route: 048
  5. BERAPROST SODIUM [Suspect]
     Active Substance: BERAPROST SODIUM
     Indication: PRODUCT USED FOR UNKNOWN INDICATION
     Route: 065
  6. VENTAVIS [Suspect]
     Active Substance: ILOPROST
     Indication: PORTOPULMONARY HYPERTENSION
     Dosage: 2.5 MCG, TID
     Route: 055
     Dates: start: 20171121, end: 20180305
  7. SPIRONOLACTONE. [Concomitant]
     Active Substance: SPIRONOLACTONE
  8. KANAMYCIN [Concomitant]
     Active Substance: KANAMYCIN\KANAMYCIN A SULFATE
     Dosage: UNK
     Dates: end: 20180322
  9. FEBURIC [Concomitant]
     Active Substance: FEBUXOSTAT
     Dosage: UNK
     Dates: end: 20180322
  10. KALLIDINOGENASE [Concomitant]
     Active Substance: KALLIDINOGENASE
     Dosage: UNK
     Dates: end: 20180322
  11. DYDROGESTERONE [Concomitant]
     Active Substance: DYDROGESTERONE
     Dosage: UNK
     Dates: end: 20180322
  12. ESTRADIOL. [Concomitant]
     Active Substance: ESTRADIOL
     Dosage: UNK
     Dates: end: 20180322
  13. TADALAFIL. [Suspect]
     Active Substance: TADALAFIL
     Indication: PRODUCT USED FOR UNKNOWN INDICATION
     Route: 065
  14. FURUSEMIDE [Concomitant]
     Active Substance: FUROSEMIDE
  15. MECOBALAMIN [Concomitant]
     Active Substance: METHYLCOBALAMIN
     Dosage: UNK
     Dates: end: 20180322

REACTIONS (5)
  - Headache [Not Recovered/Not Resolved]
  - Pain in jaw [Not Recovered/Not Resolved]
  - Aortic aneurysm rupture [Fatal]
  - Cerebellar haemorrhage [Fatal]
  - Dizziness [Not Recovered/Not Resolved]

NARRATIVE: CASE EVENT DATE: 20171121
